FAERS Safety Report 21830297 (Version 1)
Quarter: 2023Q1

REPORT INFORMATION
  Report Type: Spontaneous
  Country: US (occurrence: US)
  Receive Date: 20230106
  Receipt Date: 20230106
  Transmission Date: 20230417
  Serious: Yes (Other)
  Sender: FDA-Public Use
  Company Number: US-AMGEN-USASP2022227381

PATIENT
  Age: 84 Year
  Sex: Male

DRUGS (10)
  1. NPLATE [Suspect]
     Active Substance: ROMIPLOSTIM
     Indication: Thrombocytopenia
     Dosage: 150 MICROGRAM, QWK
     Route: 058
     Dates: start: 20221229
  2. NPLATE [Suspect]
     Active Substance: ROMIPLOSTIM
     Dosage: 75 MICROGRAM, QWK
     Route: 058
     Dates: start: 20221221
  3. AVASTIN [Concomitant]
     Active Substance: BEVACIZUMAB
  4. DECADRON [Concomitant]
     Active Substance: DEXAMETHASONE
  5. FOLIC ACID [Concomitant]
     Active Substance: FOLIC ACID
  6. KEPPRA [Concomitant]
     Active Substance: LEVETIRACETAM
  7. METFORMIN [Concomitant]
     Active Substance: METFORMIN HYDROCHLORIDE
  8. LOPRESSOR [Concomitant]
     Active Substance: METOPROLOL TARTRATE
  9. PROTONIX [Concomitant]
     Active Substance: PANTOPRAZOLE SODIUM
  10. MIRALAX [Concomitant]
     Active Substance: POLYETHYLENE GLYCOL 3350

REACTIONS (1)
  - Thrombocytopenia [Not Recovered/Not Resolved]

NARRATIVE: CASE EVENT DATE: 20221221
